FAERS Safety Report 20364984 (Version 1)
Quarter: 2022Q1

REPORT INFORMATION
  Report Type: Spontaneous
  Country: DE (occurrence: None)
  Receive Date: 20220122
  Receipt Date: 20220122
  Transmission Date: 20220423
  Serious: Yes (Hospitalization)
  Sender: FDA-Public Use
  Company Number: DE-ROCHE-3004702

PATIENT
  Age: 66 Year
  Sex: Male
  Weight: 80 kg

DRUGS (11)
  1. TECENTRIQ [Suspect]
     Active Substance: ATEZOLIZUMAB
     Indication: Bronchial carcinoma
     Route: 041
     Dates: start: 20210823, end: 20210823
  2. TECENTRIQ [Suspect]
     Active Substance: ATEZOLIZUMAB
     Route: 042
     Dates: start: 20210914, end: 20210914
  3. TECENTRIQ [Suspect]
     Active Substance: ATEZOLIZUMAB
     Route: 042
     Dates: start: 20211004, end: 20211004
  4. CARBOPLATIN [Concomitant]
     Active Substance: CARBOPLATIN
     Dosage: CARBOPLATIN + ETOPOSIDE (CHEMOTHERAPY) WERE GIVEN TOGETHER FOR A TOTAL OF THREE CYCLES
     Route: 042
  5. CARBOPLATIN [Concomitant]
     Active Substance: CARBOPLATIN
     Dosage: CARBOPLATIN + ETOPOSIDE (CHEMOTHERAPY) WERE GIVEN TOGETHER FOR A TOTAL OF THREE CYCLES
     Route: 042
  6. ETOPOSIDE [Concomitant]
     Active Substance: ETOPOSIDE
     Dosage: CARBOPLATIN + ETOPOSIDE (CHEMOTHERAPY) WERE GIVEN TOGETHER FOR A TOTAL OF THREE CYCLES
     Route: 042
  7. DELIX [Concomitant]
     Dosage: 1-0-0
     Route: 048
  8. ASPIRIN [Concomitant]
     Active Substance: ASPIRIN
     Dosage: 1-0-0
     Route: 048
  9. KEPPRA [Concomitant]
     Active Substance: LEVETIRACETAM
     Dosage: 1-0-1
     Route: 048
  10. SIMVASTATIN [Concomitant]
     Active Substance: SIMVASTATIN
     Dosage: 0-0-1
     Route: 048
  11. PANTOPRAZOLE SODIUM [Concomitant]
     Active Substance: PANTOPRAZOLE SODIUM
     Dosage: 1-0-1
     Route: 048

REACTIONS (1)
  - Drug eruption [Recovered/Resolved]

NARRATIVE: CASE EVENT DATE: 20211025
